FAERS Safety Report 9342829 (Version 3)
Quarter: 2013Q3

REPORT INFORMATION
  Report Type: Spontaneous
  Country: US (occurrence: US)
  Receive Date: 20130611
  Receipt Date: 20130703
  Transmission Date: 20140515
  Serious: Yes (Death, Hospitalization)
  Sender: FDA-Public Use
  Company Number: US-GLAXOSMITHKLINE-A1024227A

PATIENT
  Age: 64 Year
  Sex: Female

DRUGS (1)
  1. FLOLAN [Suspect]
     Indication: COR PULMONALE CHRONIC
     Dosage: 17NGKM CONTINUOUS
     Route: 042
     Dates: start: 20130416

REACTIONS (3)
  - Death [Fatal]
  - Oedema peripheral [Unknown]
  - Swelling [Unknown]
